FAERS Safety Report 7149379-0 (Version None)
Quarter: 2010Q4

REPORT INFORMATION
  Report Type: 
  Country: None (occurrence: None)
  Receive Date: 20101209
  Receipt Date: 20101014
  Transmission Date: 20110411
  Serious: No
  Sender: FDA-Public Use
  Company Number: US-KINGPHARMUSA00001-K201001272

PATIENT
  Sex: Male
  Weight: 56.236 kg

DRUGS (10)
  1. EMBEDA [Suspect]
     Indication: PAIN
     Dosage: 20 MG, EVERY 12 HOURS
     Route: 048
     Dates: start: 20101008, end: 20101013
  2. ROXICODONE [Concomitant]
  3. VERAPAMIL [Concomitant]
  4. OMEPRAZOLE [Concomitant]
  5. FLECAINIDE ACETATE [Concomitant]
  6. ROPINIROLE [Concomitant]
  7. MONTELUKAST [Concomitant]
  8. ALBUTEROL [Concomitant]
  9. AZELASTINE HCL [Concomitant]
  10. METHYLPREDNISOLONE [Concomitant]
     Dosage: UNK
     Dates: start: 20101011

REACTIONS (2)
  - MOVEMENT DISORDER [None]
  - TREMOR [None]
